FAERS Safety Report 15106632 (Version 4)
Quarter: 2018Q4

REPORT INFORMATION
  Report Type: Spontaneous
  Country: US (occurrence: US)
  Receive Date: 20180704
  Receipt Date: 20181016
  Transmission Date: 20190204
  Serious: No
  Sender: FDA-Public Use
  Company Number: US-SA-2018SA175186

PATIENT
  Age: 74 Year
  Sex: Female
  Weight: 54 kg

DRUGS (21)
  1. MAGNESIUM [Concomitant]
     Active Substance: MAGNESIUM
  2. CLOPIDOGREL [Concomitant]
     Active Substance: CLOPIDOGREL BISULFATE
  3. VITAMIN C [ASCORBIC ACID] [Concomitant]
  4. AMLODIPINE BESYLATE. [Concomitant]
     Active Substance: AMLODIPINE BESYLATE
  5. TURMERIC [CURCUMA LONGA] [Concomitant]
  6. HYDRALAZINE HYDROCHLORIDE. [Concomitant]
     Active Substance: HYDRALAZINE HYDROCHLORIDE
  7. HYLATOPICPLUS [Concomitant]
     Active Substance: EMOLLIENTS
  8. CLOBETASOL PROPIONATE. [Concomitant]
     Active Substance: CLOBETASOL PROPIONATE
  9. VITAMIN D3 [Concomitant]
     Active Substance: CHOLECALCIFEROL
  10. ALLOPURINOL. [Concomitant]
     Active Substance: ALLOPURINOL
  11. POTASSIUM [Concomitant]
     Active Substance: POTASSIUM
  12. LOVASTATIN. [Concomitant]
     Active Substance: LOVASTATIN
  13. BENAZEPRIL [BENAZEPRIL HYDROCHLORIDE] [Concomitant]
  14. CARVEDILOL. [Concomitant]
     Active Substance: CARVEDILOL
  15. JARDIANCE DUO [Concomitant]
     Active Substance: EMPAGLIFLOZIN\METFORMIN HYDROCHLORIDE
  16. DUPIXENT [Suspect]
     Active Substance: DUPILUMAB
     Indication: DERMATITIS ATOPIC
     Dosage: 300 MG, QOW
     Route: 058
     Dates: start: 201805
  17. GOLD BOND ORIGINAL STRENGTH POWDER [Concomitant]
     Active Substance: MENTHOL\ZINC OXIDE
  18. MULTIVITAMINS [VITAMINS NOS] [Concomitant]
  19. HUMULIN NOS [Concomitant]
     Active Substance: INSULIN HUMAN
  20. ESCITALOPRAM OXALATE. [Concomitant]
     Active Substance: ESCITALOPRAM OXALATE
  21. METFORMIN HYDROCHLORIDE. [Concomitant]
     Active Substance: METFORMIN HYDROCHLORIDE

REACTIONS (5)
  - Skin exfoliation [Unknown]
  - Product dose omission [Unknown]
  - Injection site pain [Unknown]
  - Injection site mass [Unknown]
  - Dry skin [Unknown]
